FAERS Safety Report 21215683 (Version 2)
Quarter: 2022Q3

REPORT INFORMATION
  Report Type: Spontaneous
  Country: US (occurrence: US)
  Receive Date: 20220816
  Receipt Date: 20220817
  Transmission Date: 20221026
  Serious: No
  Sender: FDA-Public Use
  Company Number: US-PFIZER INC-202201053992

PATIENT
  Age: 79 Year
  Sex: Female
  Weight: 70.31 kg

DRUGS (1)
  1. PAXLOVID [Suspect]
     Active Substance: NIRMATRELVIR\RITONAVIR
     Indication: COVID-19 treatment
     Dosage: 2 DF, (TWO WHITE PILLS TOGETHER INSTEAD OF PINK PILLS) 2X/DAY
     Route: 048
     Dates: start: 20220811

REACTIONS (2)
  - Product dose confusion [Unknown]
  - Incorrect dose administered [Unknown]

NARRATIVE: CASE EVENT DATE: 20220811
